FAERS Safety Report 21592464 (Version 1)
Quarter: 2022Q4

REPORT INFORMATION
  Report Type: Spontaneous
  Country: US (occurrence: None)
  Receive Date: 20221113
  Receipt Date: 20221113
  Transmission Date: 20230113
  Serious: Yes (Hospitalization)
  Sender: FDA-Public Use
  Company Number: None

PATIENT
  Age: 64 Year
  Sex: Female
  Weight: 60.6 kg

DRUGS (22)
  1. SPRYCEL [Suspect]
     Active Substance: DASATINIB
     Indication: Philadelphia positive chronic myeloid leukaemia
     Dosage: FREQUENCY : DAILY;?
     Route: 048
  2. AMITRIPTYLINE [Concomitant]
     Active Substance: AMITRIPTYLINE
  3. ASPIRIN [Concomitant]
     Active Substance: ASPIRIN
  4. VITAMIN B COMPLEX [Concomitant]
     Active Substance: CYANOCOBALAMIN\DEXPANTHENOL\NIACINAMIDE\PYRIDOXINE HYDROCHLORIDE\RIBOFLAVIN 5^-PHOSPHATE SODIUM\THIA
  5. CENTRUM ADULTS [Concomitant]
  6. CETIRIZINE [Concomitant]
     Active Substance: CETIRIZINE HYDROCHLORIDE
  7. VITAMIN C [Concomitant]
     Active Substance: ASCORBIC ACID
  8. DILTIAZEM [Concomitant]
     Active Substance: DILTIAZEM
  9. DULOXETINE [Concomitant]
     Active Substance: DULOXETINE
  10. FERROUS SULFATE [Concomitant]
     Active Substance: FERROUS SULFATE
  11. GABAPENTIN [Concomitant]
     Active Substance: GABAPENTIN
  12. GARLIC OIL [Concomitant]
     Active Substance: GARLIC OIL
  13. HUMULIN NOS [Concomitant]
     Active Substance: INSULIN HUMAN
  14. IRBESARTAN [Concomitant]
     Active Substance: IRBESARTAN
  15. METOPROLOL [Concomitant]
     Active Substance: METOPROLOL
  16. MONTELUKAST [Concomitant]
     Active Substance: MONTELUKAST SODIUM
  17. PANTOPRAZOLE [Concomitant]
     Active Substance: PANTOPRAZOLE
  18. PRAVASTATIN [Concomitant]
     Active Substance: PRAVASTATIN
  19. ZINC [Concomitant]
     Active Substance: ZINC
  20. SERTRALINE [Concomitant]
     Active Substance: SERTRALINE HYDROCHLORIDE
  21. SYNTHROID [Concomitant]
     Active Substance: LEVOTHYROXINE SODIUM
  22. VENTOLIN [Concomitant]
     Active Substance: ALBUTEROL SULFATE

REACTIONS (1)
  - Dyspnoea [None]
